FAERS Safety Report 5092422-3 (Version None)
Quarter: 2006Q3

REPORT INFORMATION
  Report Type: 
  Country: None (occurrence: None)
  Receive Date: 20060825
  Receipt Date: 20060816
  Transmission Date: 20061208
  Serious: Yes (Other)
  Sender: FDA-Public Use
  Company Number: 163-20785-06080664

PATIENT
  Sex: 0

DRUGS (8)
  1. THALOMID [Suspect]
     Indication: MULTIPLE MYELOMA
     Dosage: INCREASE BY 50 MG/D WKLY, NOT TO EXCEED 400 MG/D, ORAL
     Route: 048
  2. DEXAMETHASONE [Suspect]
     Indication: MULTIPLE MYELOMA
     Dosage: 40 MG, ON DAYS 1-4 Q 28 DAYS X 6 COURSES, ORAL
     Route: 048
  3. DOXORUBICIN HCL [Suspect]
     Indication: MULTIPLE MYELOMA
     Dosage: 40 MG/M2, DAY 1 REPEAT Q 28 DAYS X 6 COURSES, INTRAVENOUS
     Route: 042
  4. VINCRISTINE [Suspect]
     Indication: MULTIPLE MYELOMA
     Dosage: 2 MG, DAY 1, REPEAT Q 28 DAYS X 6 COURSES, INTRAVENOUS
     Route: 042
  5. PREDNISONE TAB [Suspect]
     Indication: MULTIPLE MYELOMA
     Dosage: 50 MG, EVERY OTHER DAY MAINTENANCE, ORAL
     Route: 048
  6. ASPIRIN [Concomitant]
  7. AMOXICILLIN [Concomitant]
  8. ACYCLOVIR [Concomitant]

REACTIONS (13)
  - DEEP VEIN THROMBOSIS [None]
  - EMBOLISM [None]
  - FATIGUE [None]
  - MUSCLE SPASMS [None]
  - NEUROPATHY [None]
  - NEUROPATHY PERIPHERAL [None]
  - NEUTROPENIA [None]
  - PALMAR-PLANTAR ERYTHRODYSAESTHESIA SYNDROME [None]
  - PNEUMONIA [None]
  - PULMONARY EMBOLISM [None]
  - THERAPEUTIC RESPONSE DECREASED [None]
  - THROMBOCYTOPENIA [None]
  - TREMOR [None]
